FAERS Safety Report 14833363 (Version 4)
Quarter: 2018Q2

REPORT INFORMATION
  Report Type: Spontaneous
  Country: US (occurrence: US)
  Receive Date: 20180501
  Receipt Date: 20180521
  Transmission Date: 20180711
  Serious: Yes (Other)
  Sender: FDA-Public Use
  Company Number: US-PFIZER INC-2018172666

PATIENT
  Age: 13 Year
  Sex: Female

DRUGS (3)
  1. BLEOMYCIN SULFATE [Suspect]
     Active Substance: BLEOMYCIN SULFATE
     Indication: OVARIAN GERM CELL ENDODERMAL SINUS TUMOUR STAGE I
     Dosage: UNK, CYCLIC (4 CYCLES OF BEP)
  2. ETOPOSIDE. [Suspect]
     Active Substance: ETOPOSIDE
     Indication: OVARIAN GERM CELL ENDODERMAL SINUS TUMOUR STAGE I
     Dosage: UNK, CYCLIC (4 CYCLES OF BEP)
  3. CISPLATIN. [Suspect]
     Active Substance: CISPLATIN
     Indication: OVARIAN GERM CELL ENDODERMAL SINUS TUMOUR STAGE I
     Dosage: UNK, CYCLIC (4 CYCLES OF BEP)

REACTIONS (2)
  - Chloroma [Recovered/Resolved]
  - Second primary malignancy [Recovered/Resolved]
